FAERS Safety Report 16150214 (Version 4)
Quarter: 2022Q4

REPORT INFORMATION
  Report Type: Spontaneous
  Country: US (occurrence: None)
  Receive Date: 20190402
  Receipt Date: 20221014
  Transmission Date: 20230113
  Serious: Yes (Other)
  Sender: FDA-Public Use
  Company Number: 2019SE47282

PATIENT
  Age: 812 Month
  Sex: Female
  Weight: 81.6 kg

DRUGS (74)
  1. NEXIUM 24HR [Suspect]
     Active Substance: ESOMEPRAZOLE MAGNESIUM
     Indication: Gastrooesophageal reflux disease
     Route: 048
     Dates: start: 20160920, end: 20161020
  2. ESOMEPRAZOLE [Suspect]
     Active Substance: ESOMEPRAZOLE
     Indication: Gastrooesophageal reflux disease
     Dosage: GENERIC
     Route: 065
     Dates: start: 201612
  3. ESOMEPRAZOLE [Suspect]
     Active Substance: ESOMEPRAZOLE
     Indication: Gastrooesophageal reflux disease
     Dosage: GENERIC
     Route: 065
     Dates: start: 20161217
  4. DEXILANT [Suspect]
     Active Substance: DEXLANSOPRAZOLE
     Indication: Gastrooesophageal reflux disease
     Route: 048
     Dates: start: 20140216, end: 20151229
  5. DEXILANT [Suspect]
     Active Substance: DEXLANSOPRAZOLE
     Indication: Gastrooesophageal reflux disease
     Route: 065
     Dates: start: 20140216, end: 20151219
  6. DEXILANT [Suspect]
     Active Substance: DEXLANSOPRAZOLE
     Indication: Gastrooesophageal reflux disease
     Route: 048
     Dates: start: 20140206, end: 20140305
  7. PREVACID 24 HR [Suspect]
     Active Substance: LANSOPRAZOLE
     Indication: Gastrooesophageal reflux disease
     Route: 065
     Dates: start: 20160401, end: 20160601
  8. LANSOPRAZOLE [Suspect]
     Active Substance: LANSOPRAZOLE
     Indication: Gastrooesophageal reflux disease
     Route: 065
     Dates: start: 20160401, end: 20160601
  9. LANSOPRAZOLE [Suspect]
     Active Substance: LANSOPRAZOLE
     Indication: Gastrooesophageal reflux disease
     Dosage: GENERIC
     Route: 065
     Dates: start: 20130517, end: 20130617
  10. LANSOPRAZOLE [Suspect]
     Active Substance: LANSOPRAZOLE
     Indication: Gastrooesophageal reflux disease
     Dosage: GENERIC
     Route: 065
     Dates: start: 20140806
  11. PANTOPRAZOLE [Suspect]
     Active Substance: PANTOPRAZOLE
     Indication: Gastrooesophageal reflux disease
     Route: 065
     Dates: start: 2021
  12. PANTOPRAZOLE [Suspect]
     Active Substance: PANTOPRAZOLE
     Indication: Gastrooesophageal reflux disease
     Route: 065
     Dates: start: 200908
  13. PANTOPRAZOLE [Suspect]
     Active Substance: PANTOPRAZOLE
     Indication: Gastrooesophageal reflux disease
     Route: 065
     Dates: start: 20100719, end: 20110926
  14. PANTOPRAZOLE [Suspect]
     Active Substance: PANTOPRAZOLE
     Indication: Gastrooesophageal reflux disease
     Route: 065
     Dates: start: 20200223, end: 20140218
  15. PANTOPRAZOLE [Suspect]
     Active Substance: PANTOPRAZOLE
     Indication: Gastrooesophageal reflux disease
     Route: 065
     Dates: start: 20110927, end: 20111222
  16. PANTOPRAZOLE [Suspect]
     Active Substance: PANTOPRAZOLE
     Indication: Gastrooesophageal reflux disease
     Route: 065
     Dates: start: 20100412, end: 201402
  17. CELECOXIB [Concomitant]
     Active Substance: CELECOXIB
     Indication: Back injury
     Dates: start: 201807
  18. AMOXICILLIN [Concomitant]
     Active Substance: AMOXICILLIN
  19. AZITHROMYCIN [Concomitant]
     Active Substance: AZITHROMYCIN
  20. ERYTHROMYCIN [Concomitant]
     Active Substance: ERYTHROMYCIN
  21. TORADOL [Concomitant]
     Active Substance: KETOROLAC TROMETHAMINE
     Dates: start: 201807
  22. LEVAQUIN [Concomitant]
     Active Substance: LEVOFLOXACIN
  23. FLUCONAZOLE [Concomitant]
     Active Substance: FLUCONAZOLE
  24. ROBAXIN [Concomitant]
     Active Substance: METHOCARBAMOL
  25. ZYRTEC [Concomitant]
     Active Substance: CETIRIZINE HYDROCHLORIDE
  26. VYTORIN [Concomitant]
     Active Substance: EZETIMIBE\SIMVASTATIN
  27. ASPIRIN [Concomitant]
     Active Substance: ASPIRIN
  28. ALLOPURINOL [Concomitant]
     Active Substance: ALLOPURINOL
     Indication: Gout
  29. LEVOTHYROXINE [Concomitant]
     Active Substance: LEVOTHYROXINE
     Indication: Hypoparathyroidism
     Dates: start: 2004
  30. ALBUTEROL [Concomitant]
     Active Substance: ALBUTEROL
  31. PEPCID AC [Concomitant]
     Active Substance: FAMOTIDINE
  32. RANITIDINE [Concomitant]
     Active Substance: RANITIDINE
  33. DOXYCYCLINE [Concomitant]
     Active Substance: DOXYCYCLINE
  34. CEPHALEXIN [Concomitant]
     Active Substance: CEPHALEXIN
  35. HYDROCODONE [Concomitant]
     Active Substance: HYDROCODONE
  36. MUPIROCIN [Concomitant]
     Active Substance: MUPIROCIN
  37. TRAMADOL [Concomitant]
     Active Substance: TRAMADOL
  38. ARMOUR THYROID [Concomitant]
     Active Substance: THYROID, PORCINE
  39. COLACE [Concomitant]
     Active Substance: DOCUSATE SODIUM
  40. CITRUCEL [Concomitant]
     Active Substance: METHYLCELLULOSE (4000 MPA.S)
  41. LIDOCAINE [Concomitant]
     Active Substance: LIDOCAINE
  42. PROPOFOL [Concomitant]
     Active Substance: PROPOFOL
  43. CALCIUM CITRATE [Concomitant]
     Active Substance: CALCIUM CITRATE
  44. MAGNESIUM GLUCONATE [Concomitant]
     Active Substance: MAGNESIUM GLUCONATE
  45. VITAMIN B6 [Concomitant]
     Active Substance: PYRIDOXINE HYDROCHLORIDE
  46. METHOTREXATE [Concomitant]
     Active Substance: METHOTREXATE
  47. TOBRAMYCIN [Concomitant]
     Active Substance: TOBRAMYCIN
  48. CEFUROXIME [Concomitant]
     Active Substance: CEFUROXIME
  49. ONDANSETRON [Concomitant]
     Active Substance: ONDANSETRON
  50. METRONIDAZOLE [Concomitant]
     Active Substance: METRONIDAZOLE
  51. PREDNISONE [Concomitant]
     Active Substance: PREDNISONE
     Indication: Arthritis
     Dates: start: 201901, end: 201902
  52. DIAZEPAM [Concomitant]
     Active Substance: DIAZEPAM
  53. TIZANIDINE [Concomitant]
     Active Substance: TIZANIDINE
  54. ADVAIR DISKU [Concomitant]
  55. COLCHICINE [Concomitant]
     Active Substance: COLCHICINE
  56. CLINDAMYCIN [Concomitant]
     Active Substance: CLINDAMYCIN
  57. LEFLUNOMIDE [Concomitant]
     Active Substance: LEFLUNOMIDE
  58. CLOTRIMAZOLE [Concomitant]
     Active Substance: CLOTRIMAZOLE
     Dates: start: 20210422
  59. NITROFURANTOIN [Concomitant]
     Active Substance: NITROFURANTOIN
  60. CELECOXIB [Concomitant]
     Active Substance: CELECOXIB
  61. GEMTESA [Concomitant]
     Active Substance: VIBEGRON
  62. PHENAZOPYRIDINE [Concomitant]
     Active Substance: PHENAZOPYRIDINE
  63. DULCOLAX NOS [Concomitant]
     Active Substance: BISACODYL OR DOCUSATE SODIUM
  64. FEMARA [Concomitant]
     Active Substance: LETROZOLE
  65. GABAPENTIN [Concomitant]
     Active Substance: GABAPENTIN
  66. SIMVASTATIN [Concomitant]
     Active Substance: SIMVASTATIN
     Indication: Blood cholesterol
     Dates: start: 2018
  67. GABAPENTIN [Concomitant]
     Active Substance: GABAPENTIN
     Indication: Back injury
     Dates: start: 201807
  68. NADOLOL [Concomitant]
     Active Substance: NADOLOL
     Indication: Hypertension
     Dates: start: 1996
  69. SULFAMETHOXAZOLE\TRIMETHOPRIM [Concomitant]
     Active Substance: SULFAMETHOXAZOLE\TRIMETHOPRIM
     Indication: Infection
  70. BENADRYL [Concomitant]
     Active Substance: DIPHENHYDRAMINE HYDROCHLORIDE
     Indication: Arthropod bite
  71. MAGNESIUM [Concomitant]
     Active Substance: MAGNESIUM
     Indication: Muscle spasms
     Dates: start: 2018, end: 2019
  72. IBUPROFEN [Concomitant]
     Active Substance: IBUPROFEN
     Indication: Back pain
  73. ACETAMINOPHEN [Concomitant]
     Active Substance: ACETAMINOPHEN
     Indication: Back pain
  74. ZANTAC [Concomitant]
     Active Substance: RANITIDINE HYDROCHLORIDE

REACTIONS (2)
  - Chronic kidney disease [Not Recovered/Not Resolved]
  - Renal failure [Unknown]

NARRATIVE: CASE EVENT DATE: 20150301
